FAERS Safety Report 18040607 (Version 1)
Quarter: 2020Q3

REPORT INFORMATION
  Report Type: Spontaneous
  Country: US (occurrence: US)
  Receive Date: 20200717
  Receipt Date: 20200717
  Transmission Date: 20201103
  Serious: No
  Sender: FDA-Public Use
  Company Number: US-ROCHE-2544744

PATIENT
  Age: 50 Year
  Sex: Male

DRUGS (1)
  1. HEMLIBRA [Suspect]
     Active Substance: EMICIZUMAB-KXWH
     Indication: FACTOR VIII DEFICIENCY
     Dosage: DURATION: 015/2020 ? PRESENT
     Route: 058
     Dates: start: 2020

REACTIONS (2)
  - Contusion [Unknown]
  - Injection site pain [Unknown]

NARRATIVE: CASE EVENT DATE: 20200202
